FAERS Safety Report 13311835 (Version 1)
Quarter: 2017Q1

REPORT INFORMATION
  Report Type: Spontaneous
  Country: US (occurrence: US)
  Receive Date: 20170309
  Receipt Date: 20170309
  Transmission Date: 20170428
  Serious: No
  Sender: FDA-Public Use
  Company Number: US-009507513-1702USA005682

PATIENT
  Sex: Female
  Weight: 72.11 kg

DRUGS (1)
  1. NEXPLANON [Suspect]
     Active Substance: ETONOGESTREL
     Dosage: 1 DF, IN HER RIGHT NON-DOMINANT ARM
     Route: 059
     Dates: start: 20160204, end: 20170105

REACTIONS (2)
  - Vaginal haemorrhage [Unknown]
  - Device difficult to use [Recovered/Resolved]
